FAERS Safety Report 11867990 (Version 3)
Quarter: 2016Q1

REPORT INFORMATION
  Report Type: Spontaneous
  Country: DE (occurrence: DE)
  Receive Date: 20151224
  Receipt Date: 20160127
  Transmission Date: 20160526
  Serious: Yes (Other)
  Sender: FDA-Public Use
  Company Number: DE-009507513-1505DEU000030

PATIENT
  Age: 28 Year
  Sex: Female

DRUGS (6)
  1. PANTOZOL [Concomitant]
     Active Substance: PANTOPRAZOLE SODIUM
     Dosage: 20 MG, QD
     Dates: start: 20150125, end: 20150415
  2. FOLIC ACID. [Concomitant]
     Active Substance: FOLIC ACID
     Indication: PROPHYLAXIS
     Dosage: UNK, QD
     Route: 048
     Dates: end: 20151124
  3. TEMODAL [Suspect]
     Active Substance: TEMOZOLOMIDE
     Indication: OLIGOASTROCYTOMA
     Dosage: 75 MG/M2 BODY SURFACE
     Route: 061
     Dates: start: 20150223, end: 20150406
  4. FORTECORTIN [Concomitant]
     Active Substance: DEXAMETHASONE
     Indication: BRAIN OEDEMA
     Dosage: 2 MG, QD
     Dates: start: 20150125, end: 20150415
  5. IRON (UNSPECIFIED) [Concomitant]
     Active Substance: IRON
     Indication: ANAEMIA
     Dosage: UNK
     Route: 048
     Dates: end: 20151124
  6. IODINE [Concomitant]
     Active Substance: IODINE
     Indication: PROPHYLAXIS
     Dosage: UNK
     Route: 048
     Dates: end: 20151124

REACTIONS (2)
  - Caesarean section [Recovered/Resolved]
  - Maternal exposure during pregnancy [Recovered/Resolved]

NARRATIVE: CASE EVENT DATE: 20151124
